FAERS Safety Report 7912613-0 (Version None)
Quarter: 2011Q4

REPORT INFORMATION
  Report Type: 
  Country: None (occurrence: None)
  Receive Date: 20111114
  Receipt Date: 20111107
  Transmission Date: 20120403
  Serious: Yes (Hospitalization, Other)
  Sender: FDA-Public Use
  Company Number: JP-EISAI INC-E2020-07111-CLI-JP

PATIENT
  Sex: Male
  Weight: 56.6 kg

DRUGS (11)
  1. ARICEPT [Suspect]
     Route: 048
     Dates: start: 20090121, end: 20100317
  2. PURSENNID [Concomitant]
     Route: 048
     Dates: end: 20110121
  3. CABERGOLINE [Concomitant]
     Route: 048
  4. PANTOSIN [Concomitant]
     Route: 048
  5. HO-CHUEKI-TOU [Concomitant]
     Route: 048
     Dates: start: 20110217, end: 20110713
  6. HALCION [Concomitant]
     Indication: DEMENTIA ALZHEIMER'S TYPE
     Route: 048
     Dates: start: 20090121, end: 20101220
  7. GASMOTIN [Concomitant]
     Route: 048
  8. KAMAG G [Concomitant]
     Route: 048
  9. ARICEPT [Suspect]
     Route: 048
     Dates: start: 20100318, end: 20110628
  10. MENEST [Suspect]
     Indication: PARKINSON'S DISEASE
     Route: 048
     Dates: start: 20110124
  11. LAXOBERON [Concomitant]
     Route: 048
     Dates: end: 20100305

REACTIONS (3)
  - SINUS BRADYCARDIA [None]
  - BRADYCARDIA [None]
  - ALTERED STATE OF CONSCIOUSNESS [None]
